FAERS Safety Report 20979453 (Version 1)
Quarter: 2022Q2

REPORT INFORMATION
  Report Type: Spontaneous
  Country: US (occurrence: US)
  Receive Date: 20220620
  Receipt Date: 20220620
  Transmission Date: 20220721
  Serious: No
  Sender: FDA-Public Use
  Company Number: US-AUROBINDO-AUR-APL-2021-025863

PATIENT
  Age: 90 Year
  Sex: Female

DRUGS (3)
  1. ZANTAC 360 [Suspect]
     Active Substance: FAMOTIDINE
     Indication: Dyspepsia
     Dosage: UNK
     Route: 065
  2. PEPCID [Concomitant]
     Active Substance: FAMOTIDINE
     Indication: Product used for unknown indication
     Dosage: UNK
     Route: 065
  3. SUCRALFATE [Concomitant]
     Active Substance: SUCRALFATE
     Indication: Product used for unknown indication
     Dosage: UNK
     Route: 065

REACTIONS (9)
  - Illness [Not Recovered/Not Resolved]
  - Insomnia [Not Recovered/Not Resolved]
  - Dizziness [Not Recovered/Not Resolved]
  - Oropharyngeal discomfort [Not Recovered/Not Resolved]
  - Haemoptysis [Not Recovered/Not Resolved]
  - Dyskinesia [Not Recovered/Not Resolved]
  - Abdominal discomfort [Not Recovered/Not Resolved]
  - Product substitution issue [Unknown]
  - Drug ineffective [Unknown]
